FAERS Safety Report 14128329 (Version 1)
Quarter: 2017Q4

REPORT INFORMATION
  Report Type: Spontaneous
  Country: US (occurrence: None)
  Receive Date: 20171026
  Receipt Date: 20171026
  Transmission Date: 20180321
  Serious: Yes (Hospitalization)
  Sender: FDA-Public Use
  Company Number: None

PATIENT
  Sex: Female

DRUGS (1)
  1. METHOTREXATE. [Suspect]
     Active Substance: METHOTREXATE
     Indication: RHEUMATOID ARTHRITIS

REACTIONS (8)
  - Electrolyte imbalance [None]
  - Foot fracture [None]
  - Therapy cessation [None]
  - Loss of consciousness [None]
  - Paraesthesia [None]
  - Blood potassium decreased [None]
  - Vomiting [None]
  - Diarrhoea [None]
